FAERS Safety Report 8351417-4 (Version None)
Quarter: 2012Q2

REPORT INFORMATION
  Report Type: 
  Country: None (occurrence: None)
  Receive Date: 20120510
  Receipt Date: 20120503
  Transmission Date: 20120825
  Serious: Yes (Death, Hospitalization, Other)
  Sender: FDA-Public Use
  Company Number: US-RB-035929-11

PATIENT
  Age: 53 Year
  Sex: Female

DRUGS (1)
  1. SUBOXONE [Suspect]
     Indication: DRUG DEPENDENCE
     Route: 060
     Dates: start: 20111001, end: 20111217

REACTIONS (7)
  - PROCEDURAL PAIN [None]
  - OFF LABEL USE [None]
  - NEOPLASM [None]
  - CHEST PAIN [None]
  - CARDIAC ENZYMES INCREASED [None]
  - CORONARY ARTERY OCCLUSION [None]
  - MYOCARDIAL INFARCTION [None]
